FAERS Safety Report 8913333 (Version 2)
Quarter: 2013Q1

REPORT INFORMATION
  Report Type: Report from Study
  Country: AR (occurrence: AR)
  Receive Date: 20121116
  Receipt Date: 20130219
  Transmission Date: 20140127
  Serious: Yes (Other)
  Sender: FDA-Public Use
  Company Number: AR-MYLANLABS-2012S1023302

PATIENT
  Age: 34 Year
  Sex: Female

DRUGS (4)
  1. ZIDOVUDINE [Suspect]
     Route: 048
     Dates: start: 20110201
  2. EFAVIRENZ [Suspect]
     Route: 048
     Dates: start: 20110501
  3. LAMIVUDINE + ZIDOVUDINE [Suspect]
     Dates: start: 20110201
  4. ATAZANAVIR [Suspect]
     Route: 048

REACTIONS (3)
  - Foetal heart rate abnormal [Fatal]
  - Abortion induced [Recovered/Resolved]
  - Exposure during pregnancy [Recovered/Resolved]
